FAERS Safety Report 17874288 (Version 1)
Quarter: 2020Q2

REPORT INFORMATION
  Report Type: Spontaneous
  Country: IT (occurrence: IT)
  Receive Date: 20200609
  Receipt Date: 20200609
  Transmission Date: 20200714
  Serious: Yes (Hospitalization)
  Sender: FDA-Public Use
  Company Number: IT-SA-2020SA145530

PATIENT

DRUGS (7)
  1. CRESTOR [Concomitant]
     Active Substance: ROSUVASTATIN CALCIUM
  2. LINEZOLID. [Suspect]
     Active Substance: LINEZOLID
     Indication: PSOAS ABSCESS
     Dosage: 1200 MG, QD
     Route: 048
     Dates: start: 20200127, end: 20200210
  3. TENORMIN [Concomitant]
     Active Substance: ATENOLOL
  4. EFEXOR [Concomitant]
     Active Substance: VENLAFAXINE HYDROCHLORIDE
  5. PLAVIX [Suspect]
     Active Substance: CLOPIDOGREL BISULFATE
     Indication: THROMBOSIS PROPHYLAXIS
     Dosage: 1 DF, QD
     Route: 048
     Dates: start: 20190101, end: 20200216
  6. LINEZOLID. [Suspect]
     Active Substance: LINEZOLID
     Indication: PSOAS ABSCESS
     Dosage: 2 DF, QD
     Dates: start: 20200110, end: 20200127
  7. MICARDISPLUS [Concomitant]
     Active Substance: HYDROCHLOROTHIAZIDE\TELMISARTAN

REACTIONS (1)
  - Anaemia folate deficiency [Recovering/Resolving]

NARRATIVE: CASE EVENT DATE: 20200216
